FAERS Safety Report 15140312 (Version 1)
Quarter: 2018Q3

REPORT INFORMATION
  Report Type: Spontaneous
  Country: US (occurrence: US)
  Receive Date: 20180713
  Receipt Date: 20180713
  Transmission Date: 20181010
  Serious: No
  Sender: FDA-Public Use
  Company Number: US-ENDO PHARMACEUTICALS INC-2018-024892

PATIENT
  Age: 46 Year
  Sex: Female
  Weight: 58.05 kg

DRUGS (1)
  1. COLY?MYCIN S [Suspect]
     Active Substance: COLISTIN SULFATE\HYDROCORTISONE ACETATE\NEOMYCIN SULFATE\THONZONIUM BROMIDE
     Indication: EAR INFECTION
     Dosage: 5 DROP, TID
     Route: 001
     Dates: start: 20180228, end: 20180306

REACTIONS (4)
  - Medication residue present [Unknown]
  - Hypoacusis [Unknown]
  - Ear discomfort [Unknown]
  - Dizziness [Unknown]

NARRATIVE: CASE EVENT DATE: 20180306
